FAERS Safety Report 8290654-4 (Version None)
Quarter: 2012Q2

REPORT INFORMATION
  Report Type: 
  Country: None (occurrence: None)
  Receive Date: 20120417
  Receipt Date: 20110309
  Transmission Date: 20120825
  Serious: No
  Sender: FDA-Public Use
  Company Number: US-ASTRAZENECA-2011SE13072

PATIENT
  Sex: Male
  Weight: 94.3 kg

DRUGS (4)
  1. XANAX [Concomitant]
  2. LORTAB [Concomitant]
  3. NEXIUM [Suspect]
     Route: 048
  4. FENTYL PATCHES [Concomitant]

REACTIONS (2)
  - ABDOMINAL PAIN UPPER [None]
  - MUSCULOSKELETAL CHEST PAIN [None]
